FAERS Safety Report 13519987 (Version 6)
Quarter: 2018Q3

REPORT INFORMATION
  Report Type: Spontaneous
  Country: BE (occurrence: BE)
  Receive Date: 20170506
  Receipt Date: 20180713
  Transmission Date: 20181010
  Serious: Yes (Hospitalization, Other)
  Sender: FDA-Public Use
  Company Number: BE-AUROBINDO-AUR-APL-2017-33462

PATIENT
  Age: 63 Year
  Sex: Male

DRUGS (2)
  1. AMIODARONE [Suspect]
     Active Substance: AMIODARONE
     Indication: ATRIAL FIBRILLATION
  2. AMIODARONE [Suspect]
     Active Substance: AMIODARONE
     Indication: LEFT VENTRICULAR DYSFUNCTION
     Dosage: UNK
     Route: 065

REACTIONS (19)
  - Toxicity to various agents [Recovered/Resolved]
  - Hyperthyroidism [Recovered/Resolved]
  - Urine iodine increased [Recovering/Resolving]
  - Atrial fibrillation [Not Recovered/Not Resolved]
  - Sinus arrhythmia [Recovering/Resolving]
  - Oedema peripheral [Recovering/Resolving]
  - Self-medication [Unknown]
  - Ventricular tachycardia [Recovering/Resolving]
  - Weight decreased [Recovered/Resolved]
  - Dyspnoea [Recovered/Resolved]
  - Tachycardia [Recovering/Resolving]
  - Tachycardia induced cardiomyopathy [Recovered/Resolved]
  - Left ventricular dilatation [Not Recovered/Not Resolved]
  - Ventricular dyskinesia [Recovering/Resolving]
  - Cardiac failure [Recovered/Resolved]
  - Myopathy [Recovering/Resolving]
  - Left ventricular dysfunction [Not Recovered/Not Resolved]
  - Central venous pressure increased [Recovering/Resolving]
  - Thyroxine free increased [Recovered/Resolved]
